FAERS Safety Report 20542087 (Version 1)
Quarter: 2022Q1

REPORT INFORMATION
  Report Type: Spontaneous
  Country: IL (occurrence: IL)
  Receive Date: 20220302
  Receipt Date: 20220302
  Transmission Date: 20220423
  Serious: Yes (Other)
  Sender: FDA-Public Use
  Company Number: IL-EPIHEALTH-2022-IL-000006

PATIENT
  Age: 24 Year
  Sex: Female

DRUGS (1)
  1. MINOCYCLINE HYDROCHLORIDE [Suspect]
     Active Substance: MINOCYCLINE HYDROCHLORIDE
     Indication: Mycobacterium abscessus infection
     Route: 048

REACTIONS (1)
  - Henoch-Schonlein purpura [Unknown]
